FAERS Safety Report 9657261 (Version 1)
Quarter: 2013Q4

REPORT INFORMATION
  Report Type: Report from Study
  Country: US (occurrence: US)
  Receive Date: 20131030
  Receipt Date: 20131030
  Transmission Date: 20140711
  Serious: Yes (Hospitalization)
  Sender: FDA-Public Use
  Company Number: US-SA-2013SA109982

PATIENT
  Age: 59 Year
  Sex: Female

DRUGS (5)
  1. AUBAGIO [Suspect]
     Indication: MULTIPLE SCLEROSIS
     Route: 048
     Dates: start: 20130910
  2. AUBAGIO [Suspect]
     Indication: MULTIPLE SCLEROSIS
     Route: 048
     Dates: start: 20131014
  3. PANTOPRAZOLE [Concomitant]
     Indication: DYSPEPSIA
     Route: 065
  4. PANTOPRAZOLE [Concomitant]
     Indication: DYSPEPSIA
     Route: 065
  5. AMLODIPINE [Concomitant]
     Indication: BLOOD PRESSURE
     Route: 065

REACTIONS (12)
  - Myocardial infarction [Not Recovered/Not Resolved]
  - Chest discomfort [Unknown]
  - Throat irritation [Not Recovered/Not Resolved]
  - Pain in extremity [Not Recovered/Not Resolved]
  - Hypertension [Not Recovered/Not Resolved]
  - Headache [Not Recovered/Not Resolved]
  - Dyspepsia [Not Recovered/Not Resolved]
  - Dyspepsia [Not Recovered/Not Resolved]
  - Pain [Not Recovered/Not Resolved]
  - Glossitis [Not Recovered/Not Resolved]
  - Ear pain [Not Recovered/Not Resolved]
  - Memory impairment [Not Recovered/Not Resolved]
